FAERS Safety Report 5076751-5 (Version None)
Quarter: 2006Q3

REPORT INFORMATION
  Report Type: 
  Country: None (occurrence: None)
  Receive Date: 20060725
  Receipt Date: 20060615
  Transmission Date: 20061208
  Serious: Yes (Hospitalization)
  Sender: FDA-Public Use
  Company Number: 200613442BWH

PATIENT
  Age: 27 Year
  Sex: Male

DRUGS (8)
  1. NEXAVAR [Suspect]
     Indication: HEPATIC NEOPLASM MALIGNANT
     Dosage: SEE IMAGE
     Route: 048
     Dates: start: 20060511, end: 20060513
  2. NEXAVAR [Suspect]
     Indication: HEPATIC NEOPLASM MALIGNANT
     Dosage: SEE IMAGE
     Route: 048
     Dates: start: 20060501
  3. NEXAVAR [Suspect]
     Indication: HEPATIC NEOPLASM MALIGNANT
     Dosage: SEE IMAGE
     Route: 048
     Dates: start: 20060501
  4. XELODA [Suspect]
     Dosage: 4000 MG, TOTAL DAILY
     Dates: start: 20060501
  5. OXYCONTIN [Concomitant]
  6. OXYCODONE HCL [Concomitant]
  7. SENOKOT [SENNA ALEXANDRINA] [Concomitant]
  8. IBUPROFEN [Concomitant]

REACTIONS (8)
  - BLOOD PRESSURE INCREASED [None]
  - GASTROINTESTINAL HAEMORRHAGE [None]
  - GLOSSODYNIA [None]
  - HAEMATEMESIS [None]
  - MYALGIA [None]
  - NAUSEA [None]
  - OESOPHAGEAL VARICES HAEMORRHAGE [None]
  - SINUS CONGESTION [None]
